FAERS Safety Report 8985157 (Version 2)
Quarter: 2013Q2

REPORT INFORMATION
  Report Type: Report from Study
  Country: JP (occurrence: JP)
  Receive Date: 20121224
  Receipt Date: 20130503
  Transmission Date: 20140414
  Serious: Yes (Hospitalization, Other)
  Sender: FDA-Public Use
  Company Number: JP-ASTELLAS-2012US012656

PATIENT
  Age: 75 Year
  Sex: Female

DRUGS (6)
  1. ERLOTINIB TABLET [Suspect]
     Indication: ADENOCARCINOMA PANCREAS
     Dosage: 100 MG, UID/QD
     Route: 048
     Dates: start: 20111220, end: 20120529
  2. ERLOTINIB TABLET [Suspect]
     Dosage: 100 MG, UID/QD
     Route: 048
     Dates: start: 20120606, end: 20120611
  3. GEMZAR [Suspect]
     Indication: ADENOCARCINOMA PANCREAS
     Dosage: 1000 MG/M2, 3 WEEKS ADMINISTRATION AND 1 WEEK REST
     Route: 042
     Dates: start: 20111220, end: 20120606
  4. GEMZAR [Suspect]
     Dosage: 1000 MG/M2, 3 WEEKS ADMINISTRATION AND 1 WEEK REST
     Route: 042
     Dates: start: 20120711, end: 20120815
  5. PYDOXAL [Concomitant]
     Indication: PROPHYLAXIS
     Dosage: 6 DF, UID/QD
     Route: 048
     Dates: start: 20111220
  6. HIRUDOID [Concomitant]
     Indication: PROPHYLAXIS
     Dosage: UNK
     Route: 003
     Dates: start: 20111220

REACTIONS (9)
  - Biliary tract infection [Recovered/Resolved]
  - Pyrexia [Recovered/Resolved]
  - Dysgeusia [Not Recovered/Not Resolved]
  - Platelet count decreased [Recovered/Resolved]
  - White blood cell count decreased [Recovered/Resolved]
  - Dry skin [Recovering/Resolving]
  - Dermatitis acneiform [Recovered/Resolved]
  - Decreased appetite [Not Recovered/Not Resolved]
  - Haemoglobin decreased [Recovered/Resolved]
